FAERS Safety Report 20068864 (Version 1)
Quarter: 2021Q4

REPORT INFORMATION
  Report Type: Report from Study
  Country: US (occurrence: US)
  Receive Date: 20211115
  Receipt Date: 20211115
  Transmission Date: 20220303
  Serious: Yes (Hospitalization)
  Sender: FDA-Public Use
  Company Number: US-VERTEX PHARMACEUTICALS-2021-017709

PATIENT
  Sex: Male

DRUGS (16)
  1. TRIKAFTA [Suspect]
     Active Substance: ELEXACAFTOR\IVACAFTOR\TEZACAFTOR
     Indication: Cystic fibrosis
     Dosage: 2 TABS IN AM AND 1 TAB IN PM
     Route: 048
     Dates: start: 20200306
  2. ADVAIR HFA [Concomitant]
     Active Substance: FLUTICASONE PROPIONATE\SALMETEROL XINAFOATE
  3. ALBUTEROL SULFATE [Concomitant]
     Active Substance: ALBUTEROL SULFATE
  4. ALBUTEROL SULFATE [Concomitant]
     Active Substance: ALBUTEROL SULFATE
  5. AMITIZA [Concomitant]
     Active Substance: LUBIPROSTONE
  6. AMITRIPTYLINE [Concomitant]
     Active Substance: AMITRIPTYLINE
  7. AMLODIPINE [Concomitant]
     Active Substance: AMLODIPINE BESYLATE
  8. DICYCLOMINE [Concomitant]
     Active Substance: DICYCLOMINE HYDROCHLORIDE
  9. GABAPENTIN [Concomitant]
     Active Substance: GABAPENTIN
  10. LEXAPRO [Concomitant]
     Active Substance: ESCITALOPRAM OXALATE
  11. METOPROLOL [Concomitant]
     Active Substance: METOPROLOL
  12. NORCO [Concomitant]
     Active Substance: ACETAMINOPHEN\HYDROCODONE BITARTRATE
  13. RANITIDINE [Concomitant]
     Active Substance: RANITIDINE
  14. REGLAN [Concomitant]
     Active Substance: METOCLOPRAMIDE HYDROCHLORIDE
  15. SODIUM CHLORIDE [Concomitant]
     Active Substance: SODIUM CHLORIDE
  16. TIZANIDINE [Concomitant]
     Active Substance: TIZANIDINE

REACTIONS (2)
  - Gastritis [Not Recovered/Not Resolved]
  - Fatigue [Not Recovered/Not Resolved]
